FAERS Safety Report 9394623 (Version 1)
Quarter: 2013Q3

REPORT INFORMATION
  Report Type: Spontaneous
  Country: US (occurrence: US)
  Receive Date: 20130711
  Receipt Date: 20130711
  Transmission Date: 20140515
  Serious: Yes (Other)
  Sender: FDA-Public Use
  Company Number: US-JNJFOC-20130701874

PATIENT
  Age: 45 Year
  Sex: Male

DRUGS (7)
  1. STELARA [Suspect]
     Indication: PSORIASIS
     Route: 058
  2. STELARA [Suspect]
     Indication: PSORIASIS
     Route: 058
  3. STELARA [Suspect]
     Indication: PSORIASIS
     Route: 058
     Dates: start: 201302
  4. NIASPAN [Concomitant]
     Route: 065
  5. LIPITOR [Concomitant]
     Route: 065
  6. LOSARTAN [Concomitant]
     Route: 065
  7. METOPROLOL [Concomitant]
     Route: 065

REACTIONS (1)
  - Prostate cancer [Not Recovered/Not Resolved]
